FAERS Safety Report 4933982-X (Version None)
Quarter: 2006Q1

REPORT INFORMATION
  Report Type: 
  Country: None (occurrence: None)
  Receive Date: 20060303
  Receipt Date: 20060209
  Transmission Date: 20060701
  Serious: Yes (Death)
  Sender: FDA-Public Use
  Company Number: 20062811

PATIENT
  Sex: Male

DRUGS (7)
  1. LIORESAL [Suspect]
     Indication: MUSCLE SPASTICITY
     Dosage: 550 MCG, DAILY, INTRATHECAL
     Route: 037
  2. PULMICORT [Concomitant]
  3. ALBUTEROL [Concomitant]
  4. NEBULIZER [Concomitant]
  5. VALIUM [Concomitant]
  6. PHENOBARBITAL TAB [Concomitant]
  7. ZOLOFT [Concomitant]

REACTIONS (1)
  - DEATH [None]
